FAERS Safety Report 19516006 (Version 3)
Quarter: 2021Q3

REPORT INFORMATION
  Report Type: Spontaneous
  Country: US (occurrence: US)
  Receive Date: 20210709
  Receipt Date: 20210831
  Transmission Date: 20211014
  Serious: No
  Sender: FDA-Public Use
  Company Number: US-ASTELLAS-2021US014326

PATIENT
  Sex: Female

DRUGS (1)
  1. MYRBETRIQ [Suspect]
     Active Substance: MIRABEGRON
     Indication: BLADDER DISORDER
     Route: 065
     Dates: start: 20210407, end: 20210412

REACTIONS (4)
  - Pruritus [Recovering/Resolving]
  - Rash pruritic [Recovering/Resolving]
  - Blister [Unknown]
  - Anxiety [Unknown]
